FAERS Safety Report 13198090 (Version 1)
Quarter: 2017Q1

REPORT INFORMATION
  Report Type: Spontaneous
  Country: US (occurrence: US)
  Receive Date: 20170207
  Receipt Date: 20170207
  Transmission Date: 20170428
  Serious: No
  Sender: FDA-Public Use
  Company Number: None

PATIENT
  Age: 59 Year
  Sex: Female

DRUGS (1)
  1. IBRANCE [Suspect]
     Active Substance: PALBOCICLIB
     Indication: BREAST CANCER FEMALE
     Dosage: DAILY FOR 21 DAYS ON, THEN 7
     Route: 048
     Dates: start: 20170203

REACTIONS (5)
  - Fatigue [None]
  - Red blood cell count decreased [None]
  - Platelet count decreased [None]
  - White blood cell disorder [None]
  - Hot flush [None]

NARRATIVE: CASE EVENT DATE: 20170207
